FAERS Safety Report 6189679-4 (Version None)
Quarter: 2009Q2

REPORT INFORMATION
  Report Type: 
  Country: None (occurrence: None)
  Receive Date: 20090514
  Receipt Date: 20090508
  Transmission Date: 20091009
  Serious: Yes (Hospitalization)
  Sender: FDA-Public Use
  Company Number: US-MEDIMMUNE-MEDI-0008369

PATIENT
  Age: 3 Month
  Sex: Male

DRUGS (2)
  1. SYNAGIS [Suspect]
     Dates: start: 20081208, end: 20090114
  2. SYNAGIS [Suspect]
     Dates: start: 20081208

REACTIONS (1)
  - UNIVENTRICULAR HEART [None]
